FAERS Safety Report 8231037-2 (Version None)
Quarter: 2012Q1

REPORT INFORMATION
  Report Type: 
  Country: None (occurrence: None)
  Receive Date: 20120323
  Receipt Date: 20120319
  Transmission Date: 20120608
  Serious: Yes (Hospitalization)
  Sender: FDA-Public Use
  Company Number: US-BAYER-2011-091646

PATIENT
  Age: 34 Year
  Sex: Female
  Weight: 54 kg

DRUGS (1)
  1. YASMIN [Suspect]
     Dosage: UNK
     Dates: start: 20070101, end: 20080101

REACTIONS (9)
  - BILIARY DYSKINESIA [None]
  - PAIN [None]
  - CHOLECYSTECTOMY [None]
  - GENERAL PHYSICAL HEALTH DETERIORATION [None]
  - EMOTIONAL DISTRESS [None]
  - ANXIETY [None]
  - ANHEDONIA [None]
  - CHOLECYSTITIS CHRONIC [None]
  - INJURY [None]
